FAERS Safety Report 8848163 (Version 1)
Quarter: 2012Q4

REPORT INFORMATION
  Report Type: 
  Country: US (occurrence: US)
  Receive Date: 20121018
  Receipt Date: 20121018
  Transmission Date: 20130627
  Serious: Yes (Hospitalization, Other)
  Sender: FDA-Public Use
  Company Number: US-ROCHE-1124136

PATIENT
  Sex: Female
  Weight: 27.2 kg

DRUGS (5)
  1. NUTROPIN AQ [Suspect]
     Indication: HYPOPITUITARISM
     Route: 058
     Dates: start: 1998
  2. NUTROPIN AQ [Suspect]
     Indication: DWARFISM
  3. PROTROPIN [Suspect]
     Indication: GROWTH HORMONE DEFICIENCY
     Route: 058
     Dates: start: 199611
  4. SYNTHROID [Concomitant]
  5. LEVOXYL [Concomitant]

REACTIONS (4)
  - Mastoiditis [Unknown]
  - VIIth nerve paralysis [Unknown]
  - Pain [Unknown]
  - Drug dose omission [Unknown]
